FAERS Safety Report 7020653-1 (Version None)
Quarter: 2010Q3

REPORT INFORMATION
  Report Type: 
  Country: None (occurrence: None)
  Receive Date: 20100929
  Receipt Date: 20100922
  Transmission Date: 20110219
  Serious: Yes (Hospitalization)
  Sender: FDA-Public Use
  Company Number: B0676758A

PATIENT
  Age: 61 Year
  Sex: Female

DRUGS (4)
  1. REQUIP [Suspect]
     Indication: PARKINSON'S DISEASE
     Dosage: 6MG PER DAY
     Route: 048
     Dates: start: 20100823, end: 20100906
  2. REQUIP [Suspect]
     Indication: PARKINSON'S DISEASE
     Route: 065
     Dates: start: 20060607
  3. NAKOM [Concomitant]
     Dosage: 1TAB PER DAY
     Route: 065
  4. MIRAPEX [Concomitant]

REACTIONS (4)
  - DRUG INTOLERANCE [None]
  - EXTRAPYRAMIDAL DISORDER [None]
  - HYPERKALAEMIA [None]
  - SUPERINFECTION [None]
